FAERS Safety Report 9269944 (Version 1)
Quarter: 2013Q2

REPORT INFORMATION
  Report Type: Report from Study
  Country: MX (occurrence: MX)
  Receive Date: 20130503
  Receipt Date: 20130503
  Transmission Date: 20140414
  Serious: Yes (Other)
  Sender: FDA-Public Use
  Company Number: MX-SANOFI-AVENTIS-2013SA043176

PATIENT
  Age: 12 Year
  Sex: Male
  Weight: 41 kg

DRUGS (5)
  1. LANTUS [Suspect]
     Indication: TYPE 1 DIABETES MELLITUS
     Route: 058
     Dates: start: 2008
  2. LANTUS [Suspect]
     Indication: TYPE 1 DIABETES MELLITUS
     Dosage: DOSE: 36 IU - 70IU
     Route: 058
     Dates: start: 20130307, end: 20130422
  3. LANTUS [Suspect]
     Indication: TYPE 1 DIABETES MELLITUS
     Route: 058
     Dates: start: 20130422
  4. HUMALOG [Concomitant]
     Indication: TYPE 1 DIABETES MELLITUS
     Route: 058
     Dates: start: 2008
  5. ENTEROGERMINA [Concomitant]
     Indication: DYSBACTERIOSIS
     Route: 048
     Dates: start: 201303

REACTIONS (10)
  - Ketoacidosis [Recovered/Resolved]
  - Product quality issue [Unknown]
  - Hyperglycaemia [Recovered/Resolved]
  - Vomiting [Recovered/Resolved]
  - Abdominal pain upper [Recovered/Resolved]
  - Weight decreased [Recovering/Resolving]
  - Injection site pain [Recovered/Resolved]
  - Hypoglycaemia [Not Recovered/Not Resolved]
  - Off label use [Unknown]
  - Hypoglycaemia [Not Recovered/Not Resolved]
